FAERS Safety Report 14607438 (Version 6)
Quarter: 2019Q3

REPORT INFORMATION
  Report Type: Spontaneous
  Country: CO (occurrence: CO)
  Receive Date: 20180307
  Receipt Date: 20190806
  Transmission Date: 20191004
  Serious: Yes (Hospitalization, Other)
  Sender: FDA-Public Use
  Company Number: CO-PFIZER INC-2018094506

PATIENT
  Age: 49 Year
  Sex: Female

DRUGS (7)
  1. XELJANZ [Suspect]
     Active Substance: TOFACITINIB CITRATE
     Dosage: 5 MG, UNK
     Route: 048
     Dates: start: 20171204
  2. XELJANZ [Suspect]
     Active Substance: TOFACITINIB CITRATE
     Dosage: 5 MG, 2X/DAY, WEEKLY
     Route: 048
     Dates: start: 2017, end: 201810
  3. XELJANZ [Suspect]
     Active Substance: TOFACITINIB CITRATE
     Dosage: 5 MG, UNK
     Route: 048
     Dates: start: 201712
  4. XELJANZ [Suspect]
     Active Substance: TOFACITINIB CITRATE
     Indication: RHEUMATOID ARTHRITIS
     Dosage: 10 MG, 2X/DAY
     Route: 048
     Dates: start: 20171204
  5. XELJANZ [Suspect]
     Active Substance: TOFACITINIB CITRATE
     Dosage: 10 MG, 2X/DAY
     Route: 048
     Dates: end: 201802
  6. XELJANZ [Suspect]
     Active Substance: TOFACITINIB CITRATE
     Dosage: UNK, 2X/DAY
     Route: 048
     Dates: start: 20180328, end: 2018
  7. PREDNISOLONE. [Concomitant]
     Active Substance: PREDNISOLONE
     Dosage: UNK

REACTIONS (16)
  - Blood glucose increased [Unknown]
  - Procedural pain [Not Recovered/Not Resolved]
  - Sepsis [Unknown]
  - Bicytopenia [Unknown]
  - Azotaemia [Unknown]
  - Renal disorder [Unknown]
  - Dermatitis [Unknown]
  - Urinary tract infection [Unknown]
  - Ureterolithiasis [Unknown]
  - Microcytic anaemia [Unknown]
  - Renal pain [Recovering/Resolving]
  - Liver disorder [Unknown]
  - Thrombocytopenia [Unknown]
  - Renal failure [Recovered/Resolved]
  - Nephrolithiasis [Unknown]
  - Drug ineffective [Not Recovered/Not Resolved]

NARRATIVE: CASE EVENT DATE: 2018
